FAERS Safety Report 5220847-1 (Version None)
Quarter: 2007Q1

REPORT INFORMATION
  Report Type: 
  Country: None (occurrence: None)
  Receive Date: 20070126
  Receipt Date: 20070117
  Transmission Date: 20070707
  Serious: Yes (Hospitalization)
  Sender: FDA-Public Use
  Company Number: US-AVENTIS-200710422US

PATIENT
  Age: 66 Year
  Sex: Male
  Weight: 111.4 kg

DRUGS (16)
  1. LOVENOX [Suspect]
     Dosage: DOSE: 210 MG WITHIN 24 HOURS
     Route: 058
     Dates: start: 20061101, end: 20061101
  2. LOVENOX [Suspect]
     Dosage: DOSE: 210 MG WITHIN 24 HOURS
     Route: 058
     Dates: start: 20061101, end: 20061101
  3. PLAVIX [Suspect]
     Dosage: DOSE: 900 MG WITHIN 24 HOURS
     Route: 048
     Dates: start: 20061101, end: 20061101
  4. PLAVIX [Suspect]
     Dosage: DOSE: 900 MG WITHIN 24 HOURS
     Route: 048
     Dates: start: 20061101, end: 20061101
  5. INTEGRILIN [Suspect]
     Dosage: DOSE: 200 MCG/MIN WITHIN 24 HOURS
     Route: 042
     Dates: start: 20061101, end: 20061101
  6. INTEGRILIN [Suspect]
     Dosage: DOSE: 200 MCG/MIN WITHIN 24 HOURS
     Route: 042
     Dates: start: 20061101, end: 20061101
  7. UNKNOWN DRUG [Suspect]
     Dosage: DOSE: UNK
     Dates: start: 20061101, end: 20061103
  8. GEMFIBRROZIL [Concomitant]
     Dosage: DOSE: UNK
  9. METOPROLOL SUCCINATE [Concomitant]
     Indication: HYPERTENSION
     Dosage: DOSE: UNK
     Dates: start: 20061101, end: 20061101
  10. METOPROLOL SUCCINATE [Concomitant]
     Indication: CORONARY ARTERY DISEASE
     Dosage: DOSE: UNK
     Dates: start: 20061101, end: 20061101
  11. METOPROLOL SUCCINATE [Concomitant]
     Dosage: DOSE: UNK
     Dates: start: 20061101, end: 20061101
  12. LISINOPRIL [Concomitant]
     Indication: HYPERTENSION
     Dosage: DOSE: UNK
  13. ASPIRIN [Concomitant]
     Indication: CORONARY ARTERY DISEASE
     Dosage: DOSE: UNK
  14. GLYCERYL TRINNTRATE [Concomitant]
     Indication: CHEST PAIN
     Dosage: DOSE: UNK
     Dates: start: 20061031, end: 20061101
  15. FUROSEMIDE [Concomitant]
     Dosage: DOSE: UNK
  16. RAMIPRIL [Concomitant]
     Indication: CORONARY ARTERY DISEASE
     Dosage: DOSE: UNK
     Dates: start: 20061101, end: 20061101

REACTIONS (1)
  - VASCULAR PSEUDOANEURYSM [None]
